FAERS Safety Report 9938733 (Version 4)
Quarter: 2014Q3

REPORT INFORMATION
  Report Type: Spontaneous
  Country: IT (occurrence: IT)
  Receive Date: 20140303
  Receipt Date: 20140703
  Transmission Date: 20150326
  Serious: Yes (Other)
  Sender: FDA-Public Use
  Company Number: IT-JNJFOC-20140217042

PATIENT
  Age: 35 Year
  Sex: Female

DRUGS (3)
  1. TEGRETOL [Suspect]
     Active Substance: CARBAMAZEPINE
     Indication: EPILEPSY
     Route: 048
     Dates: start: 20140223, end: 20140223
  2. TOPAMAX [Suspect]
     Active Substance: TOPIRAMATE
     Indication: EPILEPSY
     Route: 048
     Dates: start: 20140223, end: 20140223
  3. FRISIUM [Suspect]
     Active Substance: CLOBAZAM
     Indication: ANXIETY
     Route: 048
     Dates: start: 20140223, end: 20140223

REACTIONS (7)
  - Hypotension [Recovered/Resolved]
  - Sopor [Recovered/Resolved]
  - Neutrophil count decreased [Unknown]
  - Eosinopenia [Unknown]
  - Self injurious behaviour [Unknown]
  - Intentional overdose [Unknown]
  - Drug abuse [Recovered/Resolved]

NARRATIVE: CASE EVENT DATE: 20140223
